FAERS Safety Report 19437597 (Version 1)
Quarter: 2021Q2

REPORT INFORMATION
  Report Type: Spontaneous
  Country: US (occurrence: US)
  Receive Date: 20210618
  Receipt Date: 20210618
  Transmission Date: 20210717
  Serious: No
  Sender: FDA-Public Use
  Company Number: US-BIOHAVEN PHARMACEUTICALS-2021BHV00662

PATIENT
  Age: 70 Year
  Sex: Female

DRUGS (3)
  1. NURTEC ODT [Suspect]
     Active Substance: RIMEGEPANT SULFATE
     Indication: MIGRAINE
     Dosage: 75 MG, AS NEEDED
     Route: 048
     Dates: start: 20210505
  2. VITAMIN D [Concomitant]
     Active Substance: VITAMIN D NOS
  3. TOPAMAX [Concomitant]
     Active Substance: TOPIRAMATE
     Dosage: 2 UNK, 1X/DAY

REACTIONS (1)
  - Therapeutic product effect delayed [Not Recovered/Not Resolved]

NARRATIVE: CASE EVENT DATE: 20210517
